FAERS Safety Report 8761056 (Version 1)
Quarter: 2012Q4

REPORT INFORMATION
  Report Type: 
  Country: US (occurrence: US)
  Receive Date: 20120830
  Receipt Date: 20120830
  Transmission Date: 20130627
  Serious: Yes (Other)
  Sender: FDA-Public Use
  Company Number: PHEH2012US016871

PATIENT
  Sex: Female

DRUGS (9)
  1. DIOVAN [Suspect]
     Dosage: 320 mg, QD
  2. LEVOTHYROXINE [Concomitant]
     Dosage: 100 mg, QD
  3. BUMETANIDE [Concomitant]
     Dosage: 1 mg, QOD
  4. KLOR-CON [Concomitant]
     Dosage: 10 mg, QD
  5. LABETALOL [Concomitant]
     Dosage: 200 mg, TID
  6. OMEPRAZOLE [Concomitant]
     Dosage: 40 mg, QD
  7. SIMVASTATIN [Concomitant]
     Dosage: 20 mg, QD
  8. ASPIRIN [Concomitant]
     Dosage: 81 mg, QOD
  9. VITAMIN D [Concomitant]
     Dosage: 1.25 mg, Q2MO

REACTIONS (3)
  - Renal disorder [Unknown]
  - Scleroderma [Unknown]
  - Anaemia [Unknown]
